FAERS Safety Report 5050617-9 (Version None)
Quarter: 2006Q3

REPORT INFORMATION
  Report Type: 
  Country: None (occurrence: None)
  Receive Date: 20060710
  Receipt Date: 20060623
  Transmission Date: 20061208
  Serious: Yes (Hospitalization)
  Sender: FDA-Public Use
  Company Number: 2006RR-02791

PATIENT
  Age: 77 Year
  Sex: Male

DRUGS (5)
  1. CIPROFLOXACIN [Suspect]
     Indication: DEVICE RELATED INFECTION
     Dosage: 750 MG BID ORAL
     Route: 048
  2. DIPYRADIMAL [Concomitant]
  3. LISINOPRIL [Concomitant]
  4. FENOTEROL [Concomitant]
  5. IPRATROPRIUM [Concomitant]

REACTIONS (9)
  - ABDOMINAL PAIN [None]
  - ANURIA [None]
  - ASCITES [None]
  - DEHYDRATION [None]
  - DIARRHOEA [None]
  - HAEMODIALYSIS [None]
  - HYPOTENSION [None]
  - MALAISE [None]
  - NEPHRITIS INTERSTITIAL [None]
